FAERS Safety Report 19912521 (Version 1)
Quarter: 2021Q4

REPORT INFORMATION
  Report Type: Report from Study
  Country: US (occurrence: GB)
  Receive Date: 20211004
  Receipt Date: 20211004
  Transmission Date: 20220304
  Serious: Yes (Congenital Anomaly, Other)
  Sender: FDA-Public Use
  Company Number: GB-BOEHRINGERINGELHEIM-2019-BI-019407

PATIENT
  Age: 1 Day
  Sex: Male
  Weight: 3.1 kg

DRUGS (7)
  1. ISENTRESS [Suspect]
     Active Substance: RALTEGRAVIR POTASSIUM
     Indication: HIV infection
     Dosage: 3200 MILLIGRAM DAILY; 800 MILLIGRAM, QD; DRUG DOSAGE FORM: POWDER FOR INFUSION
     Route: 064
     Dates: start: 20100610
  2. KALETRA [Suspect]
     Active Substance: LOPINAVIR\RITONAVIR
     Indication: HIV infection
     Dosage: UNK
     Route: 064
     Dates: start: 20100610
  3. VIREAD [Suspect]
     Active Substance: TENOFOVIR DISOPROXIL FUMARATE
     Indication: HIV infection
     Dosage: UNK; DRUG DOSAGE FORM: POWDER FOR INFUSION(245)
     Route: 064
     Dates: start: 20100610
  4. LAMIVUDINE [Suspect]
     Active Substance: LAMIVUDINE
     Indication: HIV infection
     Dosage: UNK
     Route: 064
     Dates: start: 20090101, end: 20100610
  5. VIRAMUNE [Suspect]
     Active Substance: NEVIRAPINE
     Indication: HIV infection
     Dosage: UNK
     Route: 064
     Dates: start: 20090101, end: 20100610
  6. LOPINAVIR\RITONAVIR [Suspect]
     Active Substance: LOPINAVIR\RITONAVIR
     Indication: HIV infection
     Dosage: UNK
     Route: 064
  7. ZIDOVUDINE [Suspect]
     Active Substance: ZIDOVUDINE
     Indication: HIV infection
     Dosage: UNK
     Route: 064
     Dates: start: 20090101, end: 20100610

REACTIONS (2)
  - Volvulus [Unknown]
  - Foetal exposure during pregnancy [Recovered/Resolved]
